FAERS Safety Report 6155036-X (Version None)
Quarter: 2009Q2

REPORT INFORMATION
  Report Type: 
  Country: None (occurrence: None)
  Receive Date: 20090410
  Receipt Date: 20090401
  Transmission Date: 20091009
  Serious: Yes (Other)
  Sender: FDA-Public Use
  Company Number: 2009SP006846

PATIENT
  Age: 38 Year
  Sex: Male

DRUGS (3)
  1. NASONEX [Suspect]
     Indication: RHINITIS ALLERGIC
     Dosage: 1 DF;QD;NAS
     Route: 045
     Dates: start: 20071001
  2. DESLORATADINE [Concomitant]
  3. NASAL SPRAY [Concomitant]

REACTIONS (2)
  - EYELID OEDEMA [None]
  - GLAUCOMA [None]
